FAERS Safety Report 5914279-8 (Version None)
Quarter: 2008Q4

REPORT INFORMATION
  Report Type: 
  Country: None (occurrence: None)
  Receive Date: 20081009
  Receipt Date: 20081003
  Transmission Date: 20090506
  Serious: Yes (Death, Hospitalization)
  Sender: FDA-Public Use
  Company Number: FR-AMGEN-UK302226

PATIENT
  Sex: Female

DRUGS (5)
  1. NEULASTA [Suspect]
     Indication: NEUTROPENIA
     Route: 042
     Dates: start: 20080110
  2. DIURETICS [Concomitant]
  3. RED BLOOD CELLS [Concomitant]
  4. EPOETIN ALFA [Concomitant]
  5. GRANOCYTE [Concomitant]
     Dates: start: 19910201, end: 20080107

REACTIONS (3)
  - ACUTE RESPIRATORY FAILURE [None]
  - ELECTROCARDIOGRAM T WAVE INVERSION [None]
  - GRANULOCYTOSIS [None]
